FAERS Safety Report 17349871 (Version 1)
Quarter: 2020Q1

REPORT INFORMATION
  Report Type: Spontaneous
  Country: NL (occurrence: NL)
  Receive Date: 20200130
  Receipt Date: 20200130
  Transmission Date: 20200409
  Serious: Yes (Other)
  Sender: FDA-Public Use
  Company Number: NL-HBP-2020NL020175

PATIENT
  Age: 55 Year
  Sex: Male

DRUGS (1)
  1. LEDAGA [Suspect]
     Active Substance: MECHLORETHAMINE HYDROCHLORIDE
     Indication: CUTANEOUS T-CELL LYMPHOMA STAGE II
     Dosage: UNK, QD
     Route: 061
     Dates: start: 201908, end: 201911

REACTIONS (3)
  - Dermatitis [Recovered/Resolved]
  - Drug ineffective [Unknown]
  - Disease progression [Unknown]

NARRATIVE: CASE EVENT DATE: 201911
